FAERS Safety Report 18523205 (Version 1)
Quarter: 2020Q4

REPORT INFORMATION
  Report Type: Spontaneous
  Country: US (occurrence: US)
  Receive Date: 20201119
  Receipt Date: 20201119
  Transmission Date: 20210114
  Serious: Yes (Disabling, Other)
  Sender: FDA-Public Use
  Company Number: US-SA-2020SA330185

PATIENT

DRUGS (3)
  1. TRIAMCINOLONE ACETONIDE. [Suspect]
     Active Substance: TRIAMCINOLONE ACETONIDE
     Dosage: SUBTENONS
  2. MITOMYCIN C [Concomitant]
     Active Substance: MITOMYCIN
  3. PREDNISONE. [Suspect]
     Active Substance: PREDNISONE
     Route: 048

REACTIONS (5)
  - Tractional retinal detachment [Recovering/Resolving]
  - Pupillary reflex impaired [Recovering/Resolving]
  - Blindness [Not Recovered/Not Resolved]
  - Rhegmatogenous retinal detachment [Recovering/Resolving]
  - Eye infection toxoplasmal [Recovering/Resolving]
